FAERS Safety Report 5192192-4 (Version None)
Quarter: 2006Q4

REPORT INFORMATION
  Report Type: 
  Country: None (occurrence: None)
  Receive Date: 20061220
  Receipt Date: 20061218
  Transmission Date: 20070319
  Serious: Yes (Disabling, Other)
  Sender: FDA-Public Use
  Company Number: FRWYE696329NOV06

PATIENT
  Age: 33 Year
  Sex: Female

DRUGS (2)
  1. MICROVAL (LEVONORGESTREL, TABLET, 0) [Suspect]
     Indication: CONTRACEPTION
     Dosage: ORAL
     Route: 048
     Dates: end: 20060613
  2. TRACLEER [Suspect]
     Dosage: 125 MG 2X PER 1 DAY; ORAL
     Route: 048

REACTIONS (6)
  - CAESAREAN SECTION [None]
  - DRUG EXPOSURE DURING PREGNANCY [None]
  - DRUG INEFFECTIVE [None]
  - DRUG INTERACTION [None]
  - PREGNANCY ON ORAL CONTRACEPTIVE [None]
  - PREMATURE BABY [None]
